FAERS Safety Report 10724581 (Version 1)
Quarter: 2015Q1

REPORT INFORMATION
  Report Type: Spontaneous
  Country: FR (occurrence: FR)
  Receive Date: 20150120
  Receipt Date: 20150120
  Transmission Date: 20150721
  Serious: Yes (Other)
  Sender: FDA-Public Use
  Company Number: FR-MYLANLABS-2015M1000625

PATIENT

DRUGS (1)
  1. IPRATROPIUM MYLAN 0,25 MG/ML ENFANT [Suspect]
     Active Substance: IPRATROPIUM
     Indication: PRODUCT USED FOR UNKNOWN INDICATION
     Dosage: 1 DF, ONCE
     Route: 047
     Dates: start: 20141215

REACTIONS (3)
  - Wrong drug administered [Recovered/Resolved]
  - Medication error [Recovered/Resolved]
  - Mydriasis [Unknown]

NARRATIVE: CASE EVENT DATE: 20141215
